FAERS Safety Report 23326319 (Version 3)
Quarter: 2024Q1

REPORT INFORMATION
  Report Type: Spontaneous
  Country: US (occurrence: US)
  Receive Date: 20231221
  Receipt Date: 20240321
  Transmission Date: 20240410
  Serious: Yes (Other)
  Sender: FDA-Public Use
  Company Number: US-BAYER-2023A181890

PATIENT
  Age: 52 Year
  Sex: Female
  Weight: 64.4 kg

DRUGS (1)
  1. GADAVIST [Suspect]
     Active Substance: GADOBUTROL
     Indication: Magnetic resonance imaging
     Dosage: 16 ML, ONCE
     Dates: start: 20231214, end: 20231214

REACTIONS (4)
  - Feeling hot [Recovered/Resolved]
  - Hot flush [Recovered/Resolved]
  - Dyspnoea [Recovered/Resolved]
  - Product contamination [None]

NARRATIVE: CASE EVENT DATE: 20231214
